FAERS Safety Report 4941906-4 (Version None)
Quarter: 2006Q1

REPORT INFORMATION
  Report Type: 
  Country: None (occurrence: None)
  Receive Date: 20060313
  Receipt Date: 20050414
  Transmission Date: 20060701
  Serious: Yes (Other)
  Sender: FDA-Public Use
  Company Number: US-MERCK-0504USA02925

PATIENT
  Age: 50 Year
  Sex: Male
  Weight: 109 kg

DRUGS (9)
  1. VIOXX [Suspect]
     Indication: LIMB INJURY
     Route: 048
     Dates: start: 20000317, end: 20010203
  2. VIOXX [Suspect]
     Route: 048
     Dates: start: 20000317, end: 20010203
  3. AMBIEN [Concomitant]
     Indication: PAIN
     Route: 065
     Dates: start: 20000401
  4. ULTRAM [Concomitant]
     Indication: PAIN
     Route: 065
     Dates: start: 20000301, end: 20010601
  5. PROMETHAZINE [Concomitant]
     Indication: PAIN
     Route: 065
     Dates: start: 20000205
  6. HYDROCODONE BITARTRATE + ACETAMINOPHEN [Concomitant]
     Indication: PAIN
     Route: 065
     Dates: start: 20000726
  7. ENDOCET [Concomitant]
     Indication: MUSCLE RELAXANT THERAPY
     Route: 065
  8. NAPRELAN [Concomitant]
     Indication: NERVE INJURY
     Route: 065
     Dates: start: 20000301
  9. PROPOXYPHENE NAPSYLATE [Concomitant]
     Indication: MUSCLE RELAXANT THERAPY
     Route: 065

REACTIONS (3)
  - HYPERTENSION [None]
  - INJURY [None]
  - MYOCARDIAL INFARCTION [None]
